FAERS Safety Report 6319551-8 (Version None)
Quarter: 2009Q3

REPORT INFORMATION
  Report Type: 
  Country: None (occurrence: None)
  Receive Date: 20090822
  Receipt Date: 20080915
  Transmission Date: 20100115
  Serious: No
  Sender: FDA-Public Use
  Company Number: US-ABBOTT-08P-163-0476366-00

PATIENT
  Sex: Female

DRUGS (1)
  1. NIASPAN [Suspect]
     Indication: DRUG USE FOR UNKNOWN INDICATION

REACTIONS (3)
  - FLUSHING [None]
  - HYPOAESTHESIA [None]
  - PAIN [None]
